FAERS Safety Report 24819145 (Version 1)
Quarter: 2025Q1

REPORT INFORMATION
  Report Type: Spontaneous
  Country: US (occurrence: None)
  Receive Date: 20250108
  Receipt Date: 20250108
  Transmission Date: 20250409
  Serious: Yes (Hospitalization)
  Sender: FDA-CTU
  Company Number: None

PATIENT
  Age: 69 Year
  Sex: Male

DRUGS (2)
  1. NUBEQA [Suspect]
     Active Substance: DAROLUTAMIDE
     Indication: Prostate cancer
     Dosage: FREQUENCY : TWICE A DAY;?
     Route: 048
     Dates: start: 202410
  2. DEXAMETHASONE [Suspect]
     Active Substance: DEXAMETHASONE

REACTIONS (8)
  - Dyspnoea [None]
  - Circulatory collapse [None]
  - Pneumonia [None]
  - Thrombosis [None]
  - Pulmonary thrombosis [None]
  - Accidental overdose [None]
  - Product prescribing error [None]
  - Therapy cessation [None]

NARRATIVE: CASE EVENT DATE: 20241201
